FAERS Safety Report 22104914 (Version 4)
Quarter: 2024Q2

REPORT INFORMATION
  Report Type: Report from Study
  Country: US (occurrence: US)
  Receive Date: 20230316
  Receipt Date: 20240620
  Transmission Date: 20240716
  Serious: Yes (Hospitalization)
  Sender: FDA-Public Use
  Company Number: US-JAZZ PHARMACEUTICALS-2023-US-005846

PATIENT
  Age: 19 Year
  Sex: Female

DRUGS (3)
  1. EPIDIOLEX [Suspect]
     Active Substance: CANNABIDIOL
     Indication: Lennox-Gastaut syndrome
     Dosage: 6 MILLILITER, BID
     Route: 048
     Dates: start: 201904
  2. EPIDIOLEX [Suspect]
     Active Substance: CANNABIDIOL
     Dosage: 600 MILLIGRAM
     Route: 048
     Dates: start: 202005
  3. EPIDIOLEX [Suspect]
     Active Substance: CANNABIDIOL
     Dosage: 6 MILLILITER, BID
     Dates: start: 202206

REACTIONS (8)
  - Illness [Unknown]
  - Hepatic enzyme increased [Unknown]
  - Vomiting [Unknown]
  - Weight decreased [Unknown]
  - Hospitalisation [Unknown]
  - Hospitalisation [Unknown]
  - Emergency care [Unknown]
  - Emergency care [Unknown]

NARRATIVE: CASE EVENT DATE: 20230201
